FAERS Safety Report 9239254 (Version 4)
Quarter: 2013Q4

REPORT INFORMATION
  Report Type: Report from Study
  Country: NL (occurrence: NL)
  Receive Date: 20130418
  Receipt Date: 20131113
  Transmission Date: 20140711
  Serious: Yes (Hospitalization)
  Sender: FDA-Public Use
  Company Number: NL-ASTRAZENECA-2013SE24297

PATIENT
  Age: 18342 Day
  Sex: Female

DRUGS (11)
  1. VANDETANIB [Suspect]
     Indication: MEDULLARY THYROID CANCER
     Route: 048
     Dates: start: 20130206
  2. LEVOTHYROXINE [Interacting]
     Indication: THYROIDECTOMY
     Dosage: EXCEPT WEEKENDS
     Route: 048
     Dates: end: 20130226
  3. LEVOTHYROXINE [Interacting]
     Indication: THYROIDECTOMY
     Dosage: EXCEPT WEEKENDS
     Route: 048
     Dates: start: 20130227, end: 20130321
  4. LEVOTHYROXINE [Interacting]
     Indication: THYROIDECTOMY
     Dosage: ONLY WEEKENDS
     Route: 048
     Dates: start: 20130227, end: 20130321
  5. LEVOTHYROXINE [Interacting]
     Indication: THYROIDECTOMY
     Dosage: ONLY WEEKENDS
     Route: 048
     Dates: start: 20130322, end: 20130407
  6. LEVOTHYROXINE [Interacting]
     Indication: THYROIDECTOMY
     Dosage: ONLY WEEKENDS
     Route: 048
     Dates: start: 20130408, end: 20130409
  7. LEVOTHYROXINE [Interacting]
     Indication: THYROIDECTOMY
     Dosage: ONLY WEEKENDS
     Route: 048
     Dates: start: 20130410
  8. FERROFUMARATE [Concomitant]
     Indication: ANAEMIA PROPHYLAXIS
     Route: 048
  9. CALCIUM [Concomitant]
     Indication: SUPPLEMENTATION THERAPY
     Route: 048
  10. ALENDRONATE [Concomitant]
     Indication: OSTEOPOROSIS PROPHYLAXIS
     Route: 048
  11. FERROUS FUMARATE [Concomitant]
     Indication: ANAEMIA PROPHYLAXIS
     Route: 048

REACTIONS (2)
  - Drug interaction [Unknown]
  - Hypothyroidism [Recovered/Resolved]
